FAERS Safety Report 6768666-9 (Version None)
Quarter: 2010Q2

REPORT INFORMATION
  Report Type: 
  Country: None (occurrence: None)
  Receive Date: 20100614
  Receipt Date: 20100607
  Transmission Date: 20101027
  Serious: Yes (Other)
  Sender: FDA-Public Use
  Company Number: ES-SANOFI-AVENTIS-2010SA032423

PATIENT
  Age: 46 Year
  Sex: Female

DRUGS (4)
  1. CLOPIDOGREL BISULFATE [Suspect]
     Indication: PROPHYLAXIS
     Route: 048
     Dates: start: 20090401
  2. METFORMIN HCL [Suspect]
     Route: 048
     Dates: start: 20090901
  3. PANTOPRAZOLE [Suspect]
     Indication: PROPHYLAXIS
     Route: 048
     Dates: start: 20090901
  4. FERROUS SULFATE TAB [Suspect]
     Indication: ANAEMIA
     Route: 048
     Dates: start: 20090901

REACTIONS (3)
  - ERYTHEMA [None]
  - PRURITUS [None]
  - XEROSIS [None]
